FAERS Safety Report 12094132 (Version 2)
Quarter: 2016Q1

REPORT INFORMATION
  Report Type: Spontaneous
  Country: US (occurrence: US)
  Receive Date: 20160219
  Receipt Date: 20160331
  Transmission Date: 20160526
  Serious: Yes (Hospitalization, Other)
  Sender: FDA-Public Use
  Company Number: US-ASTRAZENECA-2016SE16271

PATIENT
  Age: 56 Year
  Sex: Male
  Weight: 88.5 kg

DRUGS (10)
  1. SYMBICORT [Suspect]
     Active Substance: BUDESONIDE\FORMOTEROL FUMARATE DIHYDRATE
     Dosage: 80/4.5 UG 2 INHALATIONS TWICE A DAY
     Route: 055
     Dates: start: 20160204
  2. PULMICORT FLEXHALER [Suspect]
     Active Substance: BUDESONIDE
     Indication: ASTHMA
     Route: 055
     Dates: start: 2013
  3. SPIRIVA [Concomitant]
     Active Substance: TIOTROPIUM BROMIDE MONOHYDRATE
     Indication: ASTHMA
     Route: 055
  4. ASPIRIN. [Concomitant]
     Active Substance: ASPIRIN
     Indication: CARDIAC DISORDER
     Route: 048
  5. MONTELUKAST [Concomitant]
     Active Substance: MONTELUKAST SODIUM
     Indication: ASTHMA
     Route: 048
  6. PROAIR HFA [Concomitant]
     Active Substance: ALBUTEROL SULFATE
     Indication: ASTHMA
     Dosage: 2 INHALATIONS EVERY 6 HOURS AND AS NEEDED
     Route: 055
  7. REFRESH EYE DROPS [Concomitant]
     Indication: EYE DISORDER
     Route: 047
  8. SYMBICORT [Suspect]
     Active Substance: BUDESONIDE\FORMOTEROL FUMARATE DIHYDRATE
     Dosage: 160/4.5 UG 2 INHALATIONS TWICE A DAY
     Route: 055
     Dates: end: 20160203
  9. PAXIL [Concomitant]
     Active Substance: PAROXETINE HYDROCHLORIDE
     Route: 048
  10. ZYPREXA [Concomitant]
     Active Substance: OLANZAPINE
     Route: 048

REACTIONS (5)
  - Drug prescribing error [Unknown]
  - Cerebrovascular accident [Unknown]
  - Device defective [Unknown]
  - Myocardial infarction [Unknown]
  - Drug dose omission [Unknown]

NARRATIVE: CASE EVENT DATE: 2015
